FAERS Safety Report 7080610-6 (Version None)
Quarter: 2010Q4

REPORT INFORMATION
  Report Type: 
  Country: None (occurrence: None)
  Receive Date: 20101103
  Receipt Date: 20101025
  Transmission Date: 20110411
  Serious: Yes (Hospitalization)
  Sender: FDA-Public Use
  Company Number: FR-ASTRAZENECA-2010SE50518

PATIENT
  Age: 26771 Day
  Sex: Male

DRUGS (12)
  1. TENORMIN [Suspect]
     Route: 048
  2. STAGID [Suspect]
     Route: 048
  3. NOVONORM [Suspect]
     Route: 048
  4. VOLTAREN [Suspect]
     Route: 048
  5. TANGANIL [Suspect]
     Route: 048
  6. VASTAREL [Suspect]
     Route: 048
  7. ELISOR [Suspect]
     Route: 048
  8. EUROBIOL [Suspect]
     Route: 048
  9. PERINDOPRIL ERBUMINE [Suspect]
     Route: 048
  10. KARDEGIC [Suspect]
     Route: 048
  11. FORADIL [Suspect]
     Dosage: 1 PUFF TWICE DAILY
     Route: 065
  12. STABLON [Concomitant]
     Route: 048

REACTIONS (1)
  - ANAEMIA HAEMOLYTIC AUTOIMMUNE [None]
